FAERS Safety Report 8607098 (Version 2)
Quarter: 2013Q2

REPORT INFORMATION
  Report Type: Spontaneous
  Country: US (occurrence: US)
  Receive Date: 20120611
  Receipt Date: 20130618
  Transmission Date: 20140414
  Serious: Yes (Hospitalization, Disabling)
  Sender: FDA-Public Use
  Company Number: US-ASTRAZENECA-2012SE34632

PATIENT
  Age: 35 Year
  Sex: Female
  Weight: 34 kg

DRUGS (9)
  1. NEXIUM [Suspect]
     Route: 048
  2. PREVACID [Suspect]
     Indication: ABDOMINAL PAIN UPPER
     Route: 065
     Dates: start: 2000, end: 2005
  3. PREVACID [Suspect]
     Indication: ABDOMINAL PAIN UPPER
     Route: 065
     Dates: start: 20051027
  4. MEGACE [Concomitant]
     Dosage: 1 TO 4 TIMES A DAY
  5. IRON [Concomitant]
  6. REMICADE [Concomitant]
  7. METHOTREXATE [Concomitant]
  8. FOLIC ACID [Concomitant]
  9. COMPAZINE [Concomitant]

REACTIONS (7)
  - Gastrointestinal disorder [Unknown]
  - Malaise [Unknown]
  - Osteoporosis [Unknown]
  - Multiple fractures [Unknown]
  - Bone pain [Unknown]
  - Crohn^s disease [Unknown]
  - Dyskinesia [Unknown]
